FAERS Safety Report 25087326 (Version 1)
Quarter: 2025Q1

REPORT INFORMATION
  Report Type: Report from Study
  Country: US (occurrence: US)
  Receive Date: 20250318
  Receipt Date: 20250318
  Transmission Date: 20250408
  Serious: Yes (Other)
  Sender: TEVA
  Company Number: US-TEVA-VS-3309020

PATIENT
  Age: 69 Year
  Sex: Female

DRUGS (1)
  1. AUSTEDO XR [Suspect]
     Active Substance: DEUTETRABENAZINE
     Indication: Tourette^s disorder
     Route: 065
     Dates: start: 20241230, end: 20250106

REACTIONS (4)
  - Confusional state [Recovering/Resolving]
  - Mental disorder [Recovering/Resolving]
  - Product use in unapproved indication [Unknown]
  - Disorientation [Recovering/Resolving]
